FAERS Safety Report 6924246-3 (Version None)
Quarter: 2010Q3

REPORT INFORMATION
  Report Type: 
  Country: None (occurrence: None)
  Receive Date: 20100811
  Receipt Date: 20100811
  Transmission Date: 20110219
  Serious: No
  Sender: FDA-Public Use
  Company Number: None

PATIENT
  Sex: Male
  Weight: 107.5 kg

DRUGS (3)
  1. CYTARABINE [Suspect]
     Dosage: 645 MG
     Dates: end: 20100725
  2. DAUNORUBICIN HCL [Suspect]
     Dosage: 388 MG
     Dates: end: 20100725
  3. ETOPOSIDE [Suspect]
     Dosage: 430 MG
     Dates: end: 20100725

REACTIONS (11)
  - ACIDOSIS [None]
  - AGITATION [None]
  - BONE MARROW FAILURE [None]
  - CONDITION AGGRAVATED [None]
  - HYPERCAPNIA [None]
  - HYPERPHOSPHATAEMIA [None]
  - LUNG NEOPLASM [None]
  - METABOLIC DISORDER [None]
  - PNEUMONIA [None]
  - PYREXIA [None]
  - RESPIRATORY FAILURE [None]
